FAERS Safety Report 24377969 (Version 2)
Quarter: 2024Q4

REPORT INFORMATION
  Report Type: Spontaneous
  Country: US (occurrence: US)
  Receive Date: 20240930
  Receipt Date: 20241011
  Transmission Date: 20250115
  Serious: No
  Sender: LUNDBECK
  Company Number: US-LUNDBECK-DKLU4003840

PATIENT

DRUGS (1)
  1. VYEPTI [Suspect]
     Active Substance: EPTINEZUMAB-JJMR
     Indication: Migraine
     Route: 041
     Dates: start: 20240820

REACTIONS (6)
  - Throat irritation [Unknown]
  - Coordination abnormal [Unknown]
  - Inflammation [Unknown]
  - Nasopharyngitis [Unknown]
  - COVID-19 [Unknown]
  - Headache [Unknown]
